FAERS Safety Report 12651149 (Version 3)
Quarter: 2020Q4

REPORT INFORMATION
  Report Type: Spontaneous
  Country: US (occurrence: US)
  Receive Date: 20160815
  Receipt Date: 20201027
  Transmission Date: 20210113
  Serious: No
  Sender: FDA-Public Use
  Company Number: US-JAZZ-2016-US-005219

PATIENT
  Sex: Female

DRUGS (36)
  1. HYDROXYCHLOROQUINE PHOSPHATE [Concomitant]
     Active Substance: HYDROXYCHLOROQUINE DIPHOSPHATE
  2. SPIRONOLACTONE. [Concomitant]
     Active Substance: SPIRONOLACTONE
  3. XYREM [Suspect]
     Active Substance: SODIUM OXYBATE
     Indication: NARCOLEPSY
     Dosage: 2.25 G, BID
     Route: 048
     Dates: start: 201602, end: 201602
  4. XYREM [Suspect]
     Active Substance: SODIUM OXYBATE
     Dosage: DOSE ADJUSTMENTS
     Route: 048
  5. BACTRIM DS [Concomitant]
     Active Substance: SULFAMETHOXAZOLE\TRIMETHOPRIM
  6. LEXAPRO [Concomitant]
     Active Substance: ESCITALOPRAM OXALATE
  7. FOLIC ACID. [Concomitant]
     Active Substance: FOLIC ACID
  8. ALLEGRA ALLERGY [Concomitant]
     Active Substance: FEXOFENADINE HYDROCHLORIDE
  9. PROMETHAZINE [Suspect]
     Active Substance: PROMETHAZINE HYDROCHLORIDE
     Indication: PRODUCT USED FOR UNKNOWN INDICATION
     Dosage: UNK
  10. LYRICA [Concomitant]
     Active Substance: PREGABALIN
  11. METFORMIN HCL [Concomitant]
     Active Substance: METFORMIN HYDROCHLORIDE
  12. FERROUS SULFATE. [Concomitant]
     Active Substance: FERROUS SULFATE
  13. CRESTOR [Concomitant]
     Active Substance: ROSUVASTATIN CALCIUM
  14. PLAVIX [Concomitant]
     Active Substance: CLOPIDOGREL BISULFATE
  15. FUROSEMIDE. [Concomitant]
     Active Substance: FUROSEMIDE
  16. HYDROCODONE / IBUPROFEN [Concomitant]
     Active Substance: HYDROCODONE BITARTRATE\IBUPROFEN
  17. CYCLOBENZAPRINE HYDROCHLORIDE. [Concomitant]
     Active Substance: CYCLOBENZAPRINE HYDROCHLORIDE
  18. NEUPRO [Concomitant]
     Active Substance: ROTIGOTINE
  19. SALAGEN [Concomitant]
     Active Substance: PILOCARPINE HYDROCHLORIDE
  20. TUMS SMOOTHIES [Concomitant]
     Active Substance: CALCIUM CARBONATE
  21. XYREM [Suspect]
     Active Substance: SODIUM OXYBATE
     Dosage: 4.5 G, AS FIRST DOSE
     Route: 048
  22. SYNTHROID [Concomitant]
     Active Substance: LEVOTHYROXINE SODIUM
  23. METHYLPHENIDATE. [Concomitant]
     Active Substance: METHYLPHENIDATE
  24. MOBIC [Concomitant]
     Active Substance: MELOXICAM
  25. DHEA [Concomitant]
     Active Substance: PRASTERONE
  26. MAGNESIUM OXIDE. [Concomitant]
     Active Substance: MAGNESIUM OXIDE
  27. CLONAZEPAM. [Suspect]
     Active Substance: CLONAZEPAM
     Indication: PRODUCT USED FOR UNKNOWN INDICATION
     Dosage: UNK
  28. CYMBALTA [Concomitant]
     Active Substance: DULOXETINE HYDROCHLORIDE
  29. BELVIQ [Concomitant]
     Active Substance: LORCASERIN HYDROCHLORIDE
  30. DEXILANT [Concomitant]
     Active Substance: DEXLANSOPRAZOLE
  31. POTASSIUM CL [Concomitant]
     Active Substance: POTASSIUM CHLORIDE
  32. METHYLPREDNISOLONE. [Concomitant]
     Active Substance: METHYLPREDNISOLONE
  33. ATENOLOL. [Concomitant]
     Active Substance: ATENOLOL
  34. BUTRANS [Concomitant]
     Active Substance: BUPRENORPHINE
  35. METHOTREXATE. [Concomitant]
     Active Substance: METHOTREXATE
  36. ONDANSETRON [Concomitant]
     Active Substance: ONDANSETRON

REACTIONS (5)
  - Cystitis [Not Recovered/Not Resolved]
  - Blood pressure increased [Recovered/Resolved]
  - Acne [Recovering/Resolving]
  - Nausea [Recovering/Resolving]
  - Anxiety [Unknown]

NARRATIVE: CASE EVENT DATE: 2016
